FAERS Safety Report 15448294 (Version 1)
Quarter: 2018Q3

REPORT INFORMATION
  Report Type: Spontaneous
  Country: US (occurrence: US)
  Receive Date: 20180929
  Receipt Date: 20180929
  Transmission Date: 20181010
  Serious: No
  Sender: FDA-Public Use
  Company Number: US-JNJFOC-20180915166

PATIENT
  Age: 86 Year
  Sex: Male

DRUGS (19)
  1. FENTANYL. [Concomitant]
     Active Substance: FENTANYL
  2. STOOL SOFTENER (DOCUSATE) [Concomitant]
     Active Substance: DOCUSATE
  3. FINASTERIDE. [Concomitant]
     Active Substance: FINASTERIDE
  4. FUROSEMIDE. [Concomitant]
     Active Substance: FUROSEMIDE
  5. POTASSIUM [Concomitant]
     Active Substance: POTASSIUM
  6. IRON [Concomitant]
     Active Substance: IRON
  7. IMBRUVICA [Suspect]
     Active Substance: IBRUTINIB
     Indication: MANTLE CELL LYMPHOMA
     Route: 048
     Dates: start: 20180515
  8. CARVEDILOL. [Concomitant]
     Active Substance: CARVEDILOL
  9. PANTOPRAZOLE [Concomitant]
     Active Substance: PANTOPRAZOLE
  10. LOVASTATIN. [Concomitant]
     Active Substance: LOVASTATIN
  11. COQ10 [Concomitant]
     Active Substance: UBIDECARENONE
  12. TYLENOL [Concomitant]
     Active Substance: ACETAMINOPHEN
  13. IMBRUVICA [Concomitant]
     Active Substance: IBRUTINIB
     Indication: MANTLE CELL LYMPHOMA
     Route: 048
     Dates: start: 20170314, end: 20180514
  14. LORAZEPAM. [Concomitant]
     Active Substance: LORAZEPAM
  15. TAMSULOSIN [Concomitant]
     Active Substance: TAMSULOSIN
  16. CALCIUM [Concomitant]
     Active Substance: CALCIUM
  17. LOSARTAN. [Concomitant]
     Active Substance: LOSARTAN
  18. SENNA [Concomitant]
     Active Substance: SENNA LEAF\SENNOSIDES\SENNOSIDES A AND B
  19. VITAMIN D3 [Concomitant]
     Active Substance: CHOLECALCIFEROL

REACTIONS (1)
  - White blood cell count increased [Unknown]

NARRATIVE: CASE EVENT DATE: 201805
